FAERS Safety Report 8457857-7 (Version None)
Quarter: 2012Q2

REPORT INFORMATION
  Report Type: 
  Country: None (occurrence: None)
  Receive Date: 20120618
  Receipt Date: 20120618
  Transmission Date: 20120825
  Serious: Yes (Death, Hospitalization)
  Sender: FDA-Public Use
  Company Number: None

PATIENT
  Sex: Male

DRUGS (4)
  1. ZOLOFT [Concomitant]
  2. INDOMETHACIN [Concomitant]
  3. AMBIEN [Concomitant]
  4. RIBAVIRIN [Suspect]
     Indication: HEPATITIS C
     Dosage: 400MG BID PO
     Route: 048
     Dates: start: 20120606, end: 20120611

REACTIONS (3)
  - CHEST PAIN [None]
  - VOMITING [None]
  - NAUSEA [None]
